FAERS Safety Report 9998942 (Version 1)
Quarter: 2014Q1

REPORT INFORMATION
  Report Type: Spontaneous
  Country: US (occurrence: None)
  Receive Date: 20140311
  Receipt Date: 20140311
  Transmission Date: 20141002
  Serious: Yes (Death)
  Sender: FDA-Public Use
  Company Number: None

PATIENT
  Age: 76 Year
  Sex: Female

DRUGS (5)
  1. LEVOPHED [Suspect]
     Indication: SEPSIS
  2. LEVOPHED [Suspect]
  3. EPINEPHRINE [Suspect]
     Indication: PNEUMONIA
  4. EPINEPHRINE [Suspect]
     Indication: RESPIRATORY FAILURE
  5. VASOPRESSIN [Suspect]

REACTIONS (4)
  - Hypotension [None]
  - Cardiac arrest [None]
  - Cardio-respiratory arrest [None]
  - Device malfunction [None]
